FAERS Safety Report 18055212 (Version 2)
Quarter: 2020Q3

REPORT INFORMATION
  Report Type: Spontaneous
  Country: PL (occurrence: PL)
  Receive Date: 20200722
  Receipt Date: 20200727
  Transmission Date: 20201103
  Serious: Yes (Other)
  Sender: FDA-Public Use
  Company Number: PL-MYLANLABS-2020M1066243

PATIENT
  Age: 3 Decade
  Sex: Female

DRUGS (8)
  1. OXALIPLATIN. [Suspect]
     Active Substance: OXALIPLATIN
     Indication: COLORECTAL CANCER METASTATIC
     Dosage: RECEIVED 10 INFUSIONS PLANNED OVER A 6?MONTH PERIOD OF TREATMENT AS A PART OF FOLFOX4.
     Dates: start: 201412, end: 201506
  2. FOLINIC ACID [Suspect]
     Active Substance: LEUCOVORIN
     Dosage: RECEIVED AS A PART OF FOLFIRI.
     Route: 065
     Dates: start: 201510
  3. FLUOROURACIL. [Suspect]
     Active Substance: FLUOROURACIL
     Indication: COLORECTAL CANCER METASTATIC
     Dosage: RECEIVED 10 INFUSIONS PLANNED OVER A 6?MONTH PERIOD OF TREATMENT AS A PART OF FOLFOX4.
     Dates: start: 201412, end: 201506
  4. FLUOROURACIL. [Suspect]
     Active Substance: FLUOROURACIL
     Dosage: RECEIVED AS A PART OF FOLFIRI.
     Route: 065
     Dates: start: 201510
  5. IRINOTECAN [Suspect]
     Active Substance: IRINOTECAN
     Dosage: RECEIVED AS A PART OF XELIRI
     Route: 065
     Dates: end: 201604
  6. CAPECITABINE. [Suspect]
     Active Substance: CAPECITABINE
     Indication: COLORECTAL CANCER METASTATIC
     Dosage: RECEIVED AS A PART OF XELIRI.
     Route: 065
     Dates: end: 201604
  7. FOLINIC ACID [Suspect]
     Active Substance: LEUCOVORIN
     Indication: COLORECTAL CANCER METASTATIC
     Dosage: RECEIVED 10 INFUSIONS PLANNED OVER A 6?MONTH PERIOD OF TREATMENT...
     Dates: start: 201412, end: 201506
  8. IRINOTECAN [Suspect]
     Active Substance: IRINOTECAN
     Indication: COLORECTAL CANCER METASTATIC
     Dosage: RECEIVED AS A PART OF FOLFIRI.
     Route: 065
     Dates: start: 201510

REACTIONS (3)
  - Neutropenia [Recovered/Resolved]
  - Drug ineffective [Unknown]
  - Thrombocytopenia [Recovered/Resolved]
